FAERS Safety Report 9106088 (Version 1)
Quarter: 2013Q1

REPORT INFORMATION
  Report Type: Report from Study
  Country: US (occurrence: US)
  Receive Date: 20130221
  Receipt Date: 20130221
  Transmission Date: 20140127
  Serious: Yes (Hospitalization)
  Sender: FDA-Public Use
  Company Number: US-BRISTOL-MYERS SQUIBB COMPANY-15965262

PATIENT
  Age: 71 Year
  Sex: Male

DRUGS (4)
  1. IPILIMUMAB [Suspect]
     Indication: PROSTATE CANCER
     Dosage: 1049 MG TOTAL DOSE
     Route: 042
     Dates: start: 20100812, end: 20110707
  2. ZOFRAN [Concomitant]
     Dates: start: 20100923
  3. OXYCONTIN [Concomitant]
     Dates: start: 20100819
  4. ZOMETA [Concomitant]
     Dates: start: 20100128

REACTIONS (3)
  - Colitis [Recovered/Resolved]
  - Fatigue [Recovered/Resolved]
  - Confusional state [Not Recovered/Not Resolved]
